FAERS Safety Report 19084808 (Version 1)
Quarter: 2021Q2

REPORT INFORMATION
  Report Type: Spontaneous
  Country: US (occurrence: US)
  Receive Date: 20210401
  Receipt Date: 20210401
  Transmission Date: 20210717
  Serious: No
  Sender: FDA-Public Use
  Company Number: US-BAUSCH-BL-2021-008513

PATIENT
  Sex: Female

DRUGS (1)
  1. JUBLIA [Suspect]
     Active Substance: EFINACONAZOLE
     Indication: PROPHYLAXIS
     Route: 061
     Dates: start: 202005, end: 202101

REACTIONS (8)
  - Application site fissure [Unknown]
  - Application site joint pain [Unknown]
  - Application site discolouration [Unknown]
  - Skin weeping [Unknown]
  - Application site irritation [Unknown]
  - Pain in extremity [Unknown]
  - Application site joint erythema [Unknown]
  - Onychoclasis [Unknown]

NARRATIVE: CASE EVENT DATE: 2020
